FAERS Safety Report 25218311 (Version 1)
Quarter: 2025Q2

REPORT INFORMATION
  Report Type: Spontaneous
  Country: CN (occurrence: CN)
  Receive Date: 20250421
  Receipt Date: 20250421
  Transmission Date: 20250717
  Serious: Yes (Hospitalization)
  Sender: NOVARTIS
  Company Number: CN-002147023-NVSC2025CN064354

PATIENT
  Age: 23 Year
  Sex: Female
  Weight: 71 kg

DRUGS (1)
  1. VALSARTAN [Suspect]
     Active Substance: VALSARTAN
     Indication: Hypertension
     Dosage: 80 MG, BID
     Route: 048
     Dates: start: 20250325, end: 20250330

REACTIONS (3)
  - Hyperkalaemia [Recovering/Resolving]
  - Hypoaesthesia oral [Unknown]
  - Hypoaesthesia [Unknown]

NARRATIVE: CASE EVENT DATE: 20250330
